FAERS Safety Report 18443309 (Version 2)
Quarter: 2020Q4

REPORT INFORMATION
  Report Type: Spontaneous
  Country: US (occurrence: US)
  Receive Date: 20201029
  Receipt Date: 20201127
  Transmission Date: 20210114
  Serious: Yes (Other)
  Sender: FDA-Public Use
  Company Number: US-NOVOPROD-761420

PATIENT
  Age: 68 Year
  Sex: Female

DRUGS (1)
  1. OZEMPIC [Suspect]
     Active Substance: SEMAGLUTIDE
     Indication: PRODUCT USED FOR UNKNOWN INDICATION
     Dosage: 0.5 MG, QW
     Route: 058
     Dates: start: 20200823

REACTIONS (1)
  - Eye oedema [Not Recovered/Not Resolved]

NARRATIVE: CASE EVENT DATE: 2020
